FAERS Safety Report 8282407 (Version 7)
Quarter: 2014Q2

REPORT INFORMATION
  Report Type: Spontaneous
  Country: US (occurrence: US)
  Receive Date: 20111209
  Receipt Date: 20140610
  Transmission Date: 20141212
  Serious: Yes (Death, Hospitalization)
  Sender: FDA-Public Use
  Company Number: US-GLAXOSMITHKLINE-A0957384A

PATIENT
  Age: 64 Year
  Sex: Male
  Weight: 95.5 kg

DRUGS (1)
  1. AVANDIA [Suspect]
     Indication: DIABETES MELLITUS
     Route: 048
     Dates: start: 200009, end: 200707

REACTIONS (7)
  - Arteriosclerosis coronary artery [Fatal]
  - Cardiac failure congestive [Unknown]
  - Myocardial infarction [Unknown]
  - Renal failure [Unknown]
  - Cerebrovascular accident [Unknown]
  - Acute myocardial infarction [Unknown]
  - Arrhythmia [Unknown]
